FAERS Safety Report 18726562 (Version 3)
Quarter: 2021Q2

REPORT INFORMATION
  Report Type: Report from Study
  Country: US (occurrence: US)
  Receive Date: 20210111
  Receipt Date: 20210621
  Transmission Date: 20210717
  Serious: Yes (Hospitalization, Other)
  Sender: FDA-Public Use
  Company Number: NVSC2021US002455

PATIENT
  Age: 60 Year
  Sex: Male

DRUGS (1)
  1. ENTRESTO [Suspect]
     Active Substance: SACUBITRIL\VALSARTAN
     Indication: CARDIAC FAILURE CHRONIC
     Dosage: UNK
     Route: 065

REACTIONS (10)
  - Product dose omission issue [Unknown]
  - Pulmonary oedema [Unknown]
  - Blood potassium decreased [Unknown]
  - Arthralgia [Unknown]
  - Cerebrovascular accident [Unknown]
  - Blindness [Unknown]
  - Tendon rupture [Unknown]
  - Fatigue [Unknown]
  - Atrial fibrillation [Unknown]
  - Blood sodium decreased [Unknown]

NARRATIVE: CASE EVENT DATE: 20210106
